FAERS Safety Report 15204220 (Version 1)
Quarter: 2018Q3

REPORT INFORMATION
  Report Type: Spontaneous
  Country: US (occurrence: US)
  Receive Date: 20180726
  Receipt Date: 20180726
  Transmission Date: 20181010
  Serious: Yes (Hospitalization)
  Sender: FDA-Public Use
  Company Number: US-MYLANLABS-2018M1054790

PATIENT
  Age: 71 Year
  Sex: Male

DRUGS (24)
  1. LORAZEPAM. [Interacting]
     Active Substance: LORAZEPAM
     Dosage: THREE TIMES A DAY AS NEEDED
     Route: 042
  2. OLANZAPINE. [Suspect]
     Active Substance: OLANZAPINE
     Indication: PSYCHOTIC DISORDER
     Dosage: AT BEDTIME WAS INITIATED ON DAY 16
     Route: 048
  3. SIMVASTATIN. [Concomitant]
     Active Substance: SIMVASTATIN
     Indication: PRODUCT USED FOR UNKNOWN INDICATION
     Dosage: AT BEDTIME
     Route: 065
  4. AMPICILLIN [Concomitant]
     Active Substance: AMPICILLIN
     Indication: URINARY TRACT INFECTION
     Route: 042
  5. LORAZEPAM. [Interacting]
     Active Substance: LORAZEPAM
     Dosage: EVERY 4 H AT BEDTIME
     Route: 042
  6. VALPROIC ACID. [Interacting]
     Active Substance: VALPROIC ACID
     Dosage: EVERY 2 H AS NEEDED WAS STARTED ON DAY 3 OF HOSPITALISATION
     Route: 042
  7. DIAZEPAM. [Suspect]
     Active Substance: DIAZEPAM
     Indication: CATATONIA
     Dosage: UP TO 60MG DAILY (LONGER?ACTING)
     Route: 042
  8. LORAZEPAM. [Interacting]
     Active Substance: LORAZEPAM
     Indication: CATATONIA
     Dosage: INITIATED ON DAY 2
     Route: 042
  9. VALPROIC ACID. [Interacting]
     Active Substance: VALPROIC ACID
     Dosage: EVERY 6 HOUR AS NEEDED
     Route: 042
  10. ZIPRASIDONE. [Suspect]
     Active Substance: ZIPRASIDONE
     Dosage: HE WAS TRANSITIONED TO INTRAMUSCULAR (IM) ZIPRASIDONE ON DAY 27
     Route: 030
  11. VALPROIC ACID. [Interacting]
     Active Substance: VALPROIC ACID
     Dosage: AFTER RE?INITIATION ON DAY 43; AND TITRATED TO 1000 MG EVERY MORNING AND 1500 MG AT BEDTIME
     Route: 048
  12. TAMULOSIN [Concomitant]
     Active Substance: TAMSULOSIN
     Indication: PRODUCT USED FOR UNKNOWN INDICATION
     Dosage: AT BEDTIME
     Route: 065
  13. CEFTRIAXONE. [Concomitant]
     Active Substance: CEFTRIAXONE
     Indication: URINARY TRACT INFECTION
     Route: 042
  14. HALOPERIDOL. [Suspect]
     Active Substance: HALOPERIDOL
     Indication: DELIRIUM
     Route: 051
  15. AMLODIPINE [Concomitant]
     Active Substance: AMLODIPINE BESYLATE
     Indication: PRODUCT USED FOR UNKNOWN INDICATION
     Dosage: 2.5 MG, QD
     Route: 065
  16. VANCOMYCIN [Concomitant]
     Active Substance: VANCOMYCIN
     Indication: CLOSTRIDIUM DIFFICILE INFECTION
     Route: 048
  17. LORAZEPAM. [Interacting]
     Active Substance: LORAZEPAM
     Dosage: LATER, THE DOSE WAS TITRATED TO 2MG THREE TIMES A DAY. LATER, IT WAS TAPERED AND STOPPED BY DAY 15
     Route: 042
  18. VALPROIC ACID. [Interacting]
     Active Substance: VALPROIC ACID
     Indication: PSYCHOTIC DISORDER
     Dosage: BY DAY 21, DOSE TITRATED 250MG IN THE MORNING AND 750MG AT BEDTIME
     Route: 048
  19. ASPIRIN                            /00002701/ [Concomitant]
     Active Substance: ASPIRIN
     Indication: PRODUCT USED FOR UNKNOWN INDICATION
     Dosage: 81 MG, QD
     Route: 065
  20. ATENOLOL. [Concomitant]
     Active Substance: ATENOLOL
     Indication: PRODUCT USED FOR UNKNOWN INDICATION
     Dosage: 25 MG, QD
     Route: 065
  21. VALPROIC ACID. [Interacting]
     Active Substance: VALPROIC ACID
     Indication: AGITATION
     Dosage: 125 MG, QD
     Route: 048
  22. HALOPERIDOL. [Suspect]
     Active Substance: HALOPERIDOL
     Indication: AGITATION
  23. ZIPRASIDONE. [Suspect]
     Active Substance: ZIPRASIDONE
     Indication: PSYCHOTIC SYMPTOM
     Dosage: INITIATED ON DAY 19 AND TITRATED TO 20 MG ORALLY TWICE A DAY OVER THE NEXT FEW DAYS
     Route: 048
  24. LORAZEPAM. [Interacting]
     Active Substance: LORAZEPAM
     Dosage: PARENTERAL LORAZEPAM ON DAY 17
     Route: 051

REACTIONS (8)
  - Psychotic disorder [Recovered/Resolved]
  - Mania [Recovering/Resolving]
  - Iron deficiency anaemia [Unknown]
  - Somnolence [Unknown]
  - Delirium [Recovering/Resolving]
  - Catatonia [Recovering/Resolving]
  - Labelled drug-drug interaction medication error [Recovering/Resolving]
  - Agitation [Recovered/Resolved]
